FAERS Safety Report 17822372 (Version 2)
Quarter: 2020Q3

REPORT INFORMATION
  Report Type: Other
  Country: US (occurrence: US)
  Receive Date: 20200526
  Receipt Date: 20200803
  Transmission Date: 20201102
  Serious: Yes (Other)
  Sender: FDA-Public Use
  Company Number: US-ROCHE-2457384

PATIENT
  Sex: Female
  Weight: 74.91 kg

DRUGS (16)
  1. OCREVUS [Suspect]
     Active Substance: OCRELIZUMAB
     Route: 042
     Dates: start: 20190607
  2. TRELEGY ELLIPTA [Concomitant]
     Active Substance: FLUTICASONE FUROATE\UMECLIDINIUM BROMIDE\VILANTEROL TRIFENATATE
     Dosage: 1 PUFF INHALATION EVERY 30 DAYS
  3. OCREVUS [Suspect]
     Active Substance: OCRELIZUMAB
     Route: 042
     Dates: start: 20190202
  4. DULOXETINE. [Concomitant]
     Active Substance: DULOXETINE
     Dosage: DAILY FOR 90 DAYS
     Route: 048
  5. CYCLOBENZAPRINE. [Concomitant]
     Active Substance: CYCLOBENZAPRINE
  6. GABAPENTIN. [Concomitant]
     Active Substance: GABAPENTIN
     Indication: NEUROPATHY PERIPHERAL
  7. OCREVUS [Suspect]
     Active Substance: OCRELIZUMAB
     Indication: PRIMARY PROGRESSIVE MULTIPLE SCLEROSIS
     Route: 042
     Dates: start: 20180202
  8. VENTOLIN HFA [Concomitant]
     Active Substance: ALBUTEROL SULFATE
  9. BUPROPION. [Concomitant]
     Active Substance: BUPROPION
  10. MARIJUANA [Concomitant]
     Active Substance: CANNABIS SATIVA SUBSP. INDICA TOP
     Dosage: HELPS TO FALL ASLEEP?VAPES 1 IN THE AFTERNOON AND EVERY NIGHT AT BEDTIME (QHS)
  11. OXYGEN. [Concomitant]
     Active Substance: OXYGEN
  12. OCREVUS [Suspect]
     Active Substance: OCRELIZUMAB
     Indication: MULTIPLE SCLEROSIS
     Route: 042
     Dates: start: 20180808
  13. OCREVUS [Suspect]
     Active Substance: OCRELIZUMAB
     Route: 042
     Dates: start: 20191212
  14. OCREVUS [Suspect]
     Active Substance: OCRELIZUMAB
     Route: 042
     Dates: start: 201806
  15. WELLBUTRIN SR [Concomitant]
     Active Substance: BUPROPION HYDROCHLORIDE
     Route: 048
  16. ATORVASTATIN [Concomitant]
     Active Substance: ATORVASTATIN
     Dosage: FOR 90 DAYS

REACTIONS (20)
  - Arthralgia [Unknown]
  - Amnesia [Unknown]
  - Polyneuropathy [Unknown]
  - Palpitations [Unknown]
  - Multiple sclerosis relapse [Unknown]
  - Cerebral disorder [Not Recovered/Not Resolved]
  - Neck pain [Unknown]
  - Myalgia [Unknown]
  - Speech disorder [Unknown]
  - Chronic obstructive pulmonary disease [Unknown]
  - Fatigue [Unknown]
  - Back pain [Unknown]
  - Pain [Unknown]
  - Drug ineffective [Unknown]
  - Dyspnoea [Not Recovered/Not Resolved]
  - Muscle spasms [Unknown]
  - Muscular weakness [Unknown]
  - Balance disorder [Unknown]
  - Confusional state [Unknown]
  - JC polyomavirus test positive [Unknown]
